FAERS Safety Report 7712296-9 (Version None)
Quarter: 2011Q3

REPORT INFORMATION
  Report Type: 
  Country: None (occurrence: None)
  Receive Date: 20110826
  Receipt Date: 20110816
  Transmission Date: 20111222
  Serious: Yes (Death, Hospitalization)
  Sender: FDA-Public Use
  Company Number: FR-KINGPHARMUSA00001-K201100964

PATIENT
  Age: 91 Year
  Sex: Female

DRUGS (12)
  1. ASPIRIN [Suspect]
  2. ALTACE [Suspect]
     Indication: CARDIAC FAILURE
     Dosage: 2.5 MG, QD
     Route: 048
     Dates: start: 20110518
  3. MEMANTINE HYDROCHLORIDE [Concomitant]
     Dosage: UNK
     Dates: start: 20101201, end: 20110501
  4. COUMADIN [Concomitant]
     Dosage: UNK
     Dates: start: 20110116, end: 20110501
  5. CALCIPARINE [Suspect]
     Indication: ATRIAL FIBRILLATION
     Dosage: UNK
     Route: 058
     Dates: start: 20110517, end: 20110527
  6. KEPPRA [Concomitant]
     Dosage: UNK
     Dates: start: 20110521, end: 20110524
  7. PANTOPRAZOLE [Concomitant]
     Dosage: UNK
  8. LASIX [Concomitant]
     Dosage: UNK
  9. OXAZEPAM [Concomitant]
     Dosage: UNK
  10. LAMOTRIGINE [Concomitant]
     Dosage: UNK
     Dates: start: 20100524
  11. CYMBALTA [Concomitant]
     Dosage: UNK
     Dates: start: 20110516, end: 20110518
  12. BISOPROLOL FUMARATE [Concomitant]
     Dosage: UNK
     Dates: start: 20110201

REACTIONS (2)
  - CARDIAC FAILURE [None]
  - HYPERKALAEMIA [None]
